FAERS Safety Report 10178115 (Version 3)
Quarter: 2014Q2

REPORT INFORMATION
  Report Type: Spontaneous
  Country: ES (occurrence: ES)
  Receive Date: 20140519
  Receipt Date: 20140611
  Transmission Date: 20141212
  Serious: Yes (Disabling, Other)
  Sender: FDA-Public Use
  Company Number: ES-ROCHE-1401519

PATIENT
  Age: 10 Year
  Sex: Female
  Weight: 30 kg

DRUGS (3)
  1. TOCILIZUMAB [Suspect]
     Indication: JUVENILE IDIOPATHIC ARTHRITIS
     Route: 042
     Dates: start: 20120322
  2. TOCILIZUMAB [Suspect]
     Indication: UVEITIS
  3. MYCOPHENOLATE MOFETIL [Suspect]
     Indication: UVEITIS
     Route: 048
     Dates: start: 20111026

REACTIONS (6)
  - Retroperitoneal lymphadenopathy [Not Recovered/Not Resolved]
  - Lymphadenopathy mediastinal [Not Recovered/Not Resolved]
  - Pulmonary mass [Not Recovered/Not Resolved]
  - Splenomegaly [Not Recovered/Not Resolved]
  - Lung infiltration [Not Recovered/Not Resolved]
  - Hypogammaglobulinaemia [Unknown]
